FAERS Safety Report 9672128 (Version 2)
Quarter: 2013Q4

REPORT INFORMATION
  Report Type: Report from Study
  Country: VE (occurrence: VE)
  Receive Date: 20131106
  Receipt Date: 20131111
  Transmission Date: 20140711
  Serious: Yes (Hospitalization, Other)
  Sender: FDA-Public Use
  Company Number: PHHY2013VE123726

PATIENT
  Age: 72 Year
  Sex: Female

DRUGS (4)
  1. ACLASTA [Suspect]
     Indication: OSTEOPOROSIS
     Dosage: 150 MG, ANNUALLY
     Route: 042
     Dates: start: 2010
  2. ACLASTA [Suspect]
     Dosage: 150 MG, ANNUALLY
     Route: 042
     Dates: start: 2011
  3. ACLASTA [Suspect]
     Dosage: 150 MG, ANNUALLY
     Route: 042
     Dates: start: 2012
  4. CORTISONE [Concomitant]
     Dosage: 5 MG, DAILY

REACTIONS (8)
  - Diverticulum [Recovered/Resolved]
  - Sepsis [Recovered/Resolved]
  - Pain [Recovered/Resolved]
  - Nephrolithiasis [Recovering/Resolving]
  - Mobility decreased [Recovered/Resolved]
  - Thrombocytopenia [Recovering/Resolving]
  - Incorrect dose administered [Unknown]
  - Anaemia [Recovering/Resolving]
